FAERS Safety Report 23510060 (Version 1)
Quarter: 2024Q1

REPORT INFORMATION
  Report Type: Other
  Country: US (occurrence: US)
  Receive Date: 20240211
  Receipt Date: 20240211
  Transmission Date: 20240410
  Serious: Yes (Life-Threatening, Hospitalization, Other)
  Sender: FDA-Public Use
  Company Number: US-FDC LIMITED-2153033

PATIENT
  Age: 81 Year
  Sex: Male

DRUGS (9)
  1. CIPROFLOXACIN HYDROCHLORIDE [Suspect]
     Active Substance: CIPROFLOXACIN HYDROCHLORIDE
     Route: 065
  2. VENETOCLAX [Suspect]
     Active Substance: VENETOCLAX
     Route: 065
  3. BENAZEPRIL [Concomitant]
     Active Substance: BENAZEPRIL HYDROCHLORIDE
     Route: 065
  4. TORSEMIDE [Suspect]
     Active Substance: TORSEMIDE
     Route: 065
  5. METOPROLOL [Suspect]
     Active Substance: METOPROLOL
     Route: 065
  6. ACYCLOVIR [Suspect]
     Active Substance: ACYCLOVIR
     Route: 065
  7. TOPROL XL [Suspect]
     Active Substance: METOPROLOL SUCCINATE
     Route: 065
  8. AMIODARONE [Suspect]
     Active Substance: AMIODARONE
     Route: 065
  9. POSACONAZOLE [Suspect]
     Active Substance: POSACONAZOLE
     Route: 065

REACTIONS (16)
  - Arrhythmia [Unknown]
  - Hypomagnesaemia [Unknown]
  - Ventricular extrasystoles [Unknown]
  - Sinus bradycardia [Unknown]
  - Splenomegaly [Unknown]
  - Hepatomegaly [Unknown]
  - Oedema [Unknown]
  - Pallor [Unknown]
  - Hypotension [Unknown]
  - Electrocardiogram QT prolonged [Recovering/Resolving]
  - Torsade de pointes [Unknown]
  - Pancytopenia [Unknown]
  - Acute kidney injury [Unknown]
  - Hypokalaemia [Recovering/Resolving]
  - Bradycardia [Unknown]
  - Syncope [Unknown]
